FAERS Safety Report 15415196 (Version 4)
Quarter: 2018Q4

REPORT INFORMATION
  Report Type: Spontaneous
  Country: US (occurrence: US)
  Receive Date: 20180921
  Receipt Date: 20181221
  Transmission Date: 20190204
  Serious: Yes (Life-Threatening, Hospitalization)
  Sender: FDA-Public Use
  Company Number: US-ACTELION-A-NJ2018-178989

PATIENT
  Age: 64 Year
  Sex: Male

DRUGS (1)
  1. OPSUMIT [Suspect]
     Active Substance: MACITENTAN
     Indication: PULMONARY ARTERIAL HYPERTENSION
     Dosage: 10 MG, QD
     Route: 048
     Dates: start: 20170323

REACTIONS (11)
  - Urinary tract infection [Unknown]
  - Intestinal perforation [Recovered/Resolved]
  - Colectomy [Unknown]
  - Diarrhoea [Unknown]
  - Surgery [Unknown]
  - Colon cancer [Not Recovered/Not Resolved]
  - Ileostomy [Unknown]
  - Dehydration [Recovered/Resolved]
  - Product dose omission [Unknown]
  - Hospitalisation [Unknown]
  - Diabetic neuropathy [Unknown]
